FAERS Safety Report 26131980 (Version 1)
Quarter: 2025Q4

REPORT INFORMATION
  Report Type: Report from Study
  Country: EU (occurrence: EU)
  Receive Date: 20251208
  Receipt Date: 20251208
  Transmission Date: 20260118
  Serious: Yes (Other)
  Sender: ESPERION THERAPEUTICS
  Company Number: EU-DAIICHI SANKYO EUROPE GMBH-DS-2025-180007-AT

PATIENT

DRUGS (1)
  1. BEMPEDOIC ACID [Suspect]
     Active Substance: BEMPEDOIC ACID
     Indication: Prophylaxis
     Dosage: 180 MG, QD
     Route: 065
     Dates: start: 20251117

REACTIONS (1)
  - Dermatitis allergic [Recovered/Resolved]

NARRATIVE: CASE EVENT DATE: 20251127
